FAERS Safety Report 14303664 (Version 2)
Quarter: 2018Q1

REPORT INFORMATION
  Report Type: Spontaneous
  Country: US (occurrence: US)
  Receive Date: 20171219
  Receipt Date: 20180216
  Transmission Date: 20180509
  Serious: Yes (Hospitalization)
  Sender: FDA-Public Use
  Company Number: US-OTSUKA-20206967

PATIENT
  Sex: Female
  Weight: 115.64 kg

DRUGS (1)
  1. ABILIFY [Suspect]
     Active Substance: ARIPIPRAZOLE
     Indication: PSYCHOTIC DISORDER
     Dosage: 15 MG, UNK
     Route: 065

REACTIONS (3)
  - Seizure [Unknown]
  - Loss of consciousness [Unknown]
  - Wrong technique in product usage process [Unknown]
